FAERS Safety Report 11645170 (Version 7)
Quarter: 2016Q3

REPORT INFORMATION
  Report Type: Report from Study
  Country: IL (occurrence: IL)
  Receive Date: 20151020
  Receipt Date: 20160811
  Transmission Date: 20161109
  Serious: Yes (Hospitalization, Other)
  Sender: FDA-Public Use
  Company Number: IL-BAYER-2015-407477

PATIENT
  Age: 35 Year
  Sex: Female

DRUGS (1)
  1. BETAFERON [Suspect]
     Active Substance: INTERFERON BETA-1B
     Indication: MULTIPLE SCLEROSIS
     Dosage: 0.25 ML, UNK
     Dates: start: 20150816, end: 20160802

REACTIONS (12)
  - Vision blurred [Not Recovered/Not Resolved]
  - Pain in extremity [Not Recovered/Not Resolved]
  - Urinary tract infection [None]
  - Dizziness [Not Recovered/Not Resolved]
  - Injection site reaction [None]
  - Injection site erythema [None]
  - Headache [None]
  - Mental disorder [Not Recovered/Not Resolved]
  - Pain [Not Recovered/Not Resolved]
  - Asthenia [None]
  - Asthenia [Not Recovered/Not Resolved]
  - Multiple sclerosis relapse [None]

NARRATIVE: CASE EVENT DATE: 2015
